FAERS Safety Report 13701787 (Version 1)
Quarter: 2017Q2

REPORT INFORMATION
  Report Type: Spontaneous
  Country: US (occurrence: US)
  Receive Date: 20170629
  Receipt Date: 20170629
  Transmission Date: 20170830
  Serious: Yes (Hospitalization)
  Sender: FDA-Public Use
  Company Number: None

PATIENT
  Age: 71 Year
  Sex: Male
  Weight: 61.6 kg

DRUGS (1)
  1. AMOXICILLIN. [Suspect]
     Active Substance: AMOXICILLIN
     Indication: DRUG THERAPY
     Route: 048
     Dates: start: 20170118, end: 20170120

REACTIONS (2)
  - Rash [None]
  - Diarrhoea [None]

NARRATIVE: CASE EVENT DATE: 20170120
